FAERS Safety Report 7335550-1 (Version None)
Quarter: 2011Q1

REPORT INFORMATION
  Report Type: 
  Country: None (occurrence: None)
  Receive Date: 20110307
  Receipt Date: 20110303
  Transmission Date: 20110831
  Serious: Yes (Other)
  Sender: FDA-Public Use
  Company Number: AU-PFIZER INC-2011047075

PATIENT
  Age: 74 Year
  Sex: Male

DRUGS (2)
  1. CADUET [Suspect]
     Indication: BLOOD PRESSURE
     Dosage: 5/40MG, 1X/DAY
     Route: 048
  2. CADUET [Suspect]
     Indication: DYSLIPIDAEMIA

REACTIONS (1)
  - RENAL IMPAIRMENT [None]
